FAERS Safety Report 11553665 (Version 1)
Quarter: 2015Q3

REPORT INFORMATION
  Report Type: Spontaneous
  Country: US (occurrence: None)
  Receive Date: 20150924
  Receipt Date: 20150924
  Transmission Date: 20151125
  Serious: No
  Sender: FDA-Public Use
  Company Number: None

PATIENT
  Age: 20 Year
  Sex: Female

DRUGS (7)
  1. NORTHERA [Suspect]
     Active Substance: DROXIDOPA
     Route: 048
  2. DIAZEPAM. [Concomitant]
     Active Substance: DIAZEPAM
  3. AMBIEN [Concomitant]
     Active Substance: ZOLPIDEM TARTRATE
  4. LEXAPRO [Concomitant]
     Active Substance: ESCITALOPRAM OXALATE
  5. CYCLOBENZAPR [Concomitant]
  6. OXYCOD/APAF [Concomitant]
  7. TRYPTOPHAN [Concomitant]
     Active Substance: TRYPTOPHAN

REACTIONS (3)
  - Night sweats [None]
  - Vertigo [None]
  - Migraine [None]
